FAERS Safety Report 9011118 (Version 1)
Quarter: 2013Q1

REPORT INFORMATION
  Report Type: Spontaneous
  Country: BR (occurrence: BR)
  Receive Date: 20130109
  Receipt Date: 20130109
  Transmission Date: 20140127
  Serious: Yes (Hospitalization, Other)
  Sender: FDA-Public Use
  Company Number: BR-US-EMD SERONO, INC.-7170117

PATIENT
  Sex: Male

DRUGS (1)
  1. REBIF [Suspect]
     Indication: RELAPSING-REMITTING MULTIPLE SCLEROSIS
     Dates: start: 20070308, end: 20120830

REACTIONS (10)
  - Multiple sclerosis relapse [Unknown]
  - Choking [Unknown]
  - Diabetes mellitus [Unknown]
  - Surgery [Unknown]
  - Injection site necrosis [Unknown]
  - Hiatus hernia [Unknown]
  - Emphysema [Unknown]
  - Bronchitis [Unknown]
  - Injection site oedema [Unknown]
  - Injection site induration [Unknown]
